FAERS Safety Report 7636867 (Version 4)
Quarter: 2013Q1

REPORT INFORMATION
  Report Type: Spontaneous
  Country: SE (occurrence: SE)
  Receive Date: 20101021
  Receipt Date: 20130131
  Transmission Date: 20140127
  Serious: Yes (Other)
  Sender: FDA-Public Use
  Company Number: SE-PFIZER INC-2010128617

PATIENT
  Age: 50 Year
  Sex: Female

DRUGS (3)
  1. LYRICA [Suspect]
     Indication: NEURALGIA
     Dosage: UNK
     Dates: start: 2007, end: 201209
  2. DIFLUCAN [Concomitant]
  3. CIPRAMIL [Concomitant]

REACTIONS (8)
  - Glossitis [Recovered/Resolved]
  - Tongue discolouration [Recovered/Resolved]
  - Pharyngeal disorder [Recovered/Resolved]
  - Dysphagia [Recovered/Resolved]
  - Oral pain [Recovered/Resolved]
  - Dysgeusia [Recovered/Resolved]
  - Odynophagia [Recovered/Resolved]
  - Glossodynia [Recovered/Resolved]
